FAERS Safety Report 6135154-2 (Version None)
Quarter: 2009Q1

REPORT INFORMATION
  Report Type: 
  Country: None (occurrence: None)
  Receive Date: 20090325
  Receipt Date: 20090308
  Transmission Date: 20090719
  Serious: Yes (Hospitalization, Other)
  Sender: FDA-Public Use
  Company Number: 2006S1001229

PATIENT
  Age: 74 Year
  Sex: Female
  Weight: 70.3075 kg

DRUGS (15)
  1. PHOSPHOSODA FLAVOR NOT SPECIFIED [Suspect]
     Indication: COLONOSCOPY
     Dosage: 90 ML: TOTAL; PO
     Route: 048
     Dates: start: 20041003, end: 20041004
  2. NORVASC [Concomitant]
  3. FOSAMAX [Concomitant]
  4. LIPITOR [Concomitant]
  5. DIOVAN /01319601/ [Concomitant]
  6. CEFPROZIL [Concomitant]
  7. COREG [Concomitant]
  8. PROCRIT /00909301/ [Concomitant]
  9. TIMOLOL MALEATE [Concomitant]
  10. ALTACE [Concomitant]
  11. NEXIUM [Concomitant]
  12. XALATAN [Concomitant]
  13. TIMOPTIC [Concomitant]
  14. FLEET ENEMA (SODIUM PHOSPHATE) [Concomitant]
  15. FLEET PREP KIT 1 [Concomitant]

REACTIONS (12)
  - ANAEMIA [None]
  - ASTHENIA [None]
  - CALCINOSIS [None]
  - DISCOMFORT [None]
  - FATIGUE [None]
  - NAUSEA [None]
  - NEPHROPATHY TOXIC [None]
  - RENAL FAILURE ACUTE [None]
  - RENAL FAILURE CHRONIC [None]
  - RENAL ISCHAEMIA [None]
  - RENAL TUBULAR NECROSIS [None]
  - TUBULOINTERSTITIAL NEPHRITIS [None]
